FAERS Safety Report 5286995-5 (Version None)
Quarter: 2007Q2

REPORT INFORMATION
  Report Type: 
  Country: None (occurrence: None)
  Receive Date: 20070404
  Receipt Date: 20070330
  Transmission Date: 20071010
  Serious: Yes (Other)
  Sender: FDA-Public Use
  Company Number: JP-PFIZER INC-2007026096

PATIENT
  Age: 80 Year
  Sex: Male

DRUGS (2)
  1. HALCION [Interacting]
     Dosage: DAILY DOSE:.375MG
     Route: 048
  2. MS CONTIN [Suspect]
     Route: 048

REACTIONS (2)
  - DRUG INTERACTION [None]
  - HALLUCINATION [None]
